FAERS Safety Report 9614405 (Version 1)
Quarter: 2013Q4

REPORT INFORMATION
  Report Type: Spontaneous
  Country: US (occurrence: None)
  Receive Date: 20131007
  Receipt Date: 20131007
  Transmission Date: 20140711
  Serious: Yes (Hospitalization)
  Sender: FDA-Public Use
  Company Number: None

PATIENT
  Age: 45 Year
  Sex: Male
  Weight: 102.2 kg

DRUGS (2)
  1. SULFAMETHOXAZOLE/TRIMETHOPRIM [Suspect]
     Indication: RASH
     Route: 048
     Dates: start: 20130810, end: 20130815
  2. CLOTRIMAZOLE [Suspect]
     Route: 061
     Dates: start: 20130810, end: 20130815

REACTIONS (3)
  - Anaphylactic reaction [None]
  - Angioedema [None]
  - Rash [None]
